FAERS Safety Report 25697545 (Version 1)
Quarter: 2025Q3

REPORT INFORMATION
  Report Type: Report from Study
  Country: US (occurrence: US)
  Receive Date: 20250818
  Receipt Date: 20250818
  Transmission Date: 20251020
  Serious: Yes (Other)
  Sender: ABBVIE
  Company Number: US-ABBVIE-6416945

PATIENT
  Age: 53 Year
  Sex: Female

DRUGS (3)
  1. SKYRIZI [Suspect]
     Active Substance: RISANKIZUMAB-RZAA
     Indication: Psoriasis
     Route: 058
     Dates: start: 20250623
  2. TAMOXIFEN [Concomitant]
     Active Substance: TAMOXIFEN
     Indication: Breast cancer
     Dates: start: 20210520
  3. OLMESARTAN [Concomitant]
     Active Substance: OLMESARTAN
     Indication: Hypertension
     Dates: start: 2023

REACTIONS (4)
  - Cerebral haemorrhage [Not Recovered/Not Resolved]
  - Headache [Recovered/Resolved]
  - Headache [Not Recovered/Not Resolved]
  - Visual impairment [Unknown]

NARRATIVE: CASE EVENT DATE: 20250101
